FAERS Safety Report 8453820-0 (Version None)
Quarter: 2012Q2

REPORT INFORMATION
  Report Type: 
  Country: None (occurrence: None)
  Receive Date: 20120620
  Receipt Date: 20120614
  Transmission Date: 20120825
  Serious: Yes (Hospitalization, Other)
  Sender: FDA-Public Use
  Company Number: PHHO2010US13813

PATIENT
  Sex: Male
  Weight: 79.6 kg

DRUGS (14)
  1. TASIGNA [Suspect]
     Indication: CHRONIC MYELOID LEUKAEMIA
     Dosage: 400 MG, QD
     Route: 048
     Dates: start: 20080407, end: 20100901
  2. TASIGNA [Suspect]
     Dosage: 400 MG, QD
     Route: 048
     Dates: end: 20101112
  3. TASIGNA [Suspect]
     Dosage: 400 MG, QD
     Route: 048
     Dates: start: 20120515
  4. TOPROL-XL [Concomitant]
  5. TASIGNA [Suspect]
     Dosage: 400 MG, QD
     Route: 048
     Dates: start: 20101113, end: 20101117
  6. ASPIRIN [Concomitant]
     Indication: CORONARY ARTERY DISEASE
     Dosage: UNK
     Dates: start: 20100901
  7. PLAVIX [Concomitant]
     Indication: PROPHYLAXIS
     Dosage: UNK
     Dates: start: 20100905
  8. TASIGNA [Suspect]
     Dosage: 400 MG, QD
     Route: 048
     Dates: start: 20101118, end: 20110902
  9. TASIGNA [Suspect]
     Dosage: 400 MG, QD
     Route: 048
     Dates: start: 20110912, end: 20120402
  10. TASIGNA [Suspect]
     Dosage: 400 MG, QD
     Route: 048
     Dates: start: 20120404, end: 20120511
  11. METOPROLOL TARTRATE [Concomitant]
     Indication: CHEST PAIN
     Dosage: 50 MG, QD
     Route: 048
     Dates: start: 20080806
  12. METOPROLOL TARTRATE [Concomitant]
     Indication: CORONARY ARTERY DISEASE
  13. PRAVASTATIN [Concomitant]
     Indication: HYPERLIPIDAEMIA
     Dosage: 80 MG, QD
     Route: 048
     Dates: start: 20100917
  14. LISINOPRIL [Concomitant]
     Indication: HYPERTENSION
     Dosage: 10 MG, QD
     Dates: start: 20100908

REACTIONS (5)
  - CHEST PAIN [None]
  - CORONARY ARTERY DISEASE [None]
  - ABDOMINAL PAIN UPPER [None]
  - CONCOMITANT DISEASE PROGRESSION [None]
  - ACUTE MYOCARDIAL INFARCTION [None]
